FAERS Safety Report 13416855 (Version 1)
Quarter: 2017Q2

REPORT INFORMATION
  Report Type: Spontaneous
  Country: PL (occurrence: PL)
  Receive Date: 20170406
  Receipt Date: 20170406
  Transmission Date: 20170830
  Serious: Yes (Other)
  Sender: FDA-Public Use
  Company Number: PL-TEVA-756598ISR

PATIENT
  Age: 93 Year
  Sex: Female

DRUGS (1)
  1. ESCITALOPRAM [Suspect]
     Active Substance: ESCITALOPRAM OXALATE
     Dosage: 10 MILLIGRAM DAILY; THE PATIENT TOOK 1 TABLET
     Dates: start: 20170324, end: 20170324

REACTIONS (4)
  - Dyspnoea [Recovered/Resolved]
  - Oral mucosal eruption [Recovering/Resolving]
  - Choking [Recovered/Resolved]
  - Incorrect drug administration duration [Unknown]

NARRATIVE: CASE EVENT DATE: 20170324
